FAERS Safety Report 8327745-5 (Version None)
Quarter: 2012Q2

REPORT INFORMATION
  Report Type: 
  Country: None (occurrence: None)
  Receive Date: 20120502
  Receipt Date: 20120424
  Transmission Date: 20120825
  Serious: No
  Sender: FDA-Public Use
  Company Number: US-PFIZER INC-2012077514

PATIENT
  Sex: Female
  Weight: 82.54 kg

DRUGS (2)
  1. PREMARIN [Suspect]
     Indication: OESTROGEN REPLACEMENT THERAPY
     Dosage: 0.625 MG, DAILY
     Dates: start: 19940101, end: 20120101
  2. DIOVAN [Suspect]
     Indication: HYPERTENSION
     Dosage: UNK, DAILY

REACTIONS (3)
  - ARTHRALGIA [None]
  - HOT FLUSH [None]
  - NERVOUSNESS [None]
